FAERS Safety Report 4861683-5 (Version None)
Quarter: 2005Q4

REPORT INFORMATION
  Report Type: 
  Country: None (occurrence: None)
  Receive Date: 20051130
  Receipt Date: 20050404
  Transmission Date: 20060501
  Serious: Yes (Other)
  Sender: FDA-Public Use
  Company Number: 2005042632

PATIENT
  Age: 49 Year
  Sex: Male
  Weight: 85.3 kg

DRUGS (22)
  1. ZYVOX [Suspect]
     Indication: PNEUMONIA
     Dosage: 1200 MG (600 MG,EVERY 12H),INTRAVENOUS
     Route: 042
     Dates: start: 20050301
  2. PARACETAMOL (PARACETAMOL) [Concomitant]
  3. SALBUTAMOL (SALBUTAMOL) [Concomitant]
  4. ALUMINUM HYDROXIDE TAB [Concomitant]
  5. CAPTOPRIL [Concomitant]
  6. CLONIDINE [Concomitant]
  7. DIPHENHYDRAMINE HCL [Concomitant]
  8. DOCUSATE SODIUM (DOCUSATE SODIUM) [Concomitant]
  9. EPOETIN ALFA (EPOETIN ALFA) [Concomitant]
  10. FENTANYL [Concomitant]
  11. FUROSEMIDE [Concomitant]
  12. HEPARIN [Concomitant]
  13. IPRATROPIUM BROMIDE [Concomitant]
  14. LOPERAMIDE HCL [Concomitant]
  15. METOPROLOL SUCCINATE [Concomitant]
  16. MINOXIDIL [Concomitant]
  17. NYSTATIN [Concomitant]
  18. PANTOPRAZOLE SODIUM [Concomitant]
  19. POTASSIUM GLUCONATE (POTASSIUM GLUCONATE) [Concomitant]
  20. PYRIDOXINE (PYRIDOXINE) [Concomitant]
  21. EPLERENONE (EPLERENONE) [Concomitant]
  22. ASPARTIC ACID (ASPARTIC ACID) [Concomitant]

REACTIONS (1)
  - BLOOD ALKALINE PHOSPHATASE INCREASED [None]
